FAERS Safety Report 9766157 (Version 1)
Quarter: 2013Q4

REPORT INFORMATION
  Report Type: Spontaneous
  Country: FR (occurrence: FR)
  Receive Date: 20131217
  Receipt Date: 20131217
  Transmission Date: 20140711
  Serious: Yes (Other)
  Sender: FDA-Public Use
  Company Number: FR-MERCK-1312FRA006133

PATIENT
  Age: 73 Year
  Sex: Male

DRUGS (1)
  1. JANUVIA [Suspect]
     Indication: TYPE 2 DIABETES MELLITUS
     Dosage: 100 MG, QD
     Route: 048
     Dates: start: 201202, end: 20130611

REACTIONS (3)
  - Eczema [Recovered/Resolved]
  - Constipation [Recovered/Resolved]
  - Myalgia [Recovered/Resolved]
